FAERS Safety Report 6793173-7 (Version None)
Quarter: 2010Q2

REPORT INFORMATION
  Report Type: 
  Country: None (occurrence: None)
  Receive Date: 20100624
  Receipt Date: 20100422
  Transmission Date: 20101027
  Serious: Yes (Other)
  Sender: FDA-Public Use
  Company Number: US-MYLANLABS-2009S1011834

PATIENT
  Age: 83 Year
  Sex: Female

DRUGS (5)
  1. CLOZAPINE [Suspect]
     Indication: SCHIZOPHRENIA
     Route: 048
     Dates: start: 20040101, end: 20090629
  2. CLOZAPINE [Suspect]
     Route: 048
     Dates: end: 20100101
  3. CLOZAPINE [Suspect]
     Route: 048
     Dates: end: 20100401
  4. SYNTHROID [Concomitant]
     Route: 048
  5. OMEPRAZOLE [Concomitant]
     Route: 048

REACTIONS (2)
  - GRANULOCYTOPENIA [None]
  - LEUKOPENIA [None]
